FAERS Safety Report 16265677 (Version 2)
Quarter: 2019Q2

REPORT INFORMATION
  Report Type: Spontaneous
  Country: US (occurrence: US)
  Receive Date: 20190502
  Receipt Date: 20190506
  Transmission Date: 20190711
  Serious: Yes (Life-Threatening, Hospitalization)
  Sender: FDA-Public Use
  Company Number: US-ELI_LILLY_AND_COMPANY-US201904014029

PATIENT
  Sex: Male

DRUGS (4)
  1. BASAGLAR [Suspect]
     Active Substance: INSULIN GLARGINE
     Indication: TYPE 2 DIABETES MELLITUS
     Dosage: 20 U, AT BEDTIME
     Route: 058
     Dates: start: 20190313
  2. HUMALOG [Suspect]
     Active Substance: INSULIN LISPRO
     Indication: TYPE 2 DIABETES MELLITUS
     Dosage: 9 U, BID(AM AND PM)
     Route: 058
     Dates: start: 20190313
  3. HUMALOG [Suspect]
     Active Substance: INSULIN LISPRO
     Dosage: 9 U, BID(AM AND PM)
     Route: 058
  4. BASAGLAR [Suspect]
     Active Substance: INSULIN GLARGINE
     Dosage: 20 U, AT BEDTIME
     Route: 058

REACTIONS (12)
  - Cataract [Not Recovered/Not Resolved]
  - Skin ulcer [Recovering/Resolving]
  - Blood disorder [Unknown]
  - Localised infection [Recovering/Resolving]
  - Wrong technique in product usage process [Unknown]
  - Respiratory arrest [Recovered/Resolved]
  - Dyspnoea [Recovered/Resolved]
  - Stress [Unknown]
  - Pneumonia [Recovered/Resolved]
  - Blood glucose increased [Recovered/Resolved]
  - Enzyme level abnormal [Unknown]
  - Blood glucose increased [Unknown]

NARRATIVE: CASE EVENT DATE: 20190424
